FAERS Safety Report 10475198 (Version 1)
Quarter: 2014Q3

REPORT INFORMATION
  Report Type: Spontaneous
  Country: US (occurrence: CA)
  Receive Date: 20140925
  Receipt Date: 20140925
  Transmission Date: 20150326
  Serious: Yes (Hospitalization, Other)
  Sender: FDA-Public Use
  Company Number: 2014SP005487

PATIENT
  Age: 34 Year
  Sex: Female

DRUGS (5)
  1. REMICADE [Suspect]
     Active Substance: INFLIXIMAB
     Indication: PRODUCT USED FOR UNKNOWN INDICATION
     Route: 042
  2. BOTOX [Concomitant]
     Active Substance: ONABOTULINUMTOXINA
     Route: 030
  3. TYLENOL WITH CODEINE [Concomitant]
     Active Substance: ACETAMINOPHEN\CODEINE PHOSPHATE
  4. ZOMIG [Concomitant]
     Active Substance: ZOLMITRIPTAN
  5. METHOTREXATE [Suspect]
     Active Substance: METHOTREXATE
     Indication: PRODUCT USED FOR UNKNOWN INDICATION

REACTIONS (4)
  - Pancreatitis acute [Unknown]
  - Cholecystitis [Unknown]
  - Intestinal stenosis [Unknown]
  - Faecaloma [Unknown]
